FAERS Safety Report 7777059-7 (Version None)
Quarter: 2011Q3

REPORT INFORMATION
  Report Type: 
  Country: None (occurrence: None)
  Receive Date: 20110926
  Receipt Date: 20110926
  Transmission Date: 20111222
  Serious: No
  Sender: FDA-Public Use
  Company Number: None

PATIENT
  Age: 32 Year
  Sex: Female
  Weight: 111.58 kg

DRUGS (1)
  1. METOCLOPRAMIDE [Suspect]
     Dates: start: 20110825, end: 20110829

REACTIONS (4)
  - MUSCLE TWITCHING [None]
  - BLEPHAROSPASM [None]
  - PHARYNGEAL DISORDER [None]
  - MUSCLE SPASMS [None]
